FAERS Safety Report 8927741 (Version 1)
Quarter: 2012Q4

REPORT INFORMATION
  Report Type: 
  Country: JP (occurrence: JP)
  Receive Date: 20121127
  Receipt Date: 20121127
  Transmission Date: 20130627
  Serious: Yes (Other)
  Sender: FDA-Public Use
  Company Number: PHHY2012JP101939

PATIENT
  Age: 64 Year
  Sex: Female
  Weight: 53 kg

DRUGS (2)
  1. AFINITOR [Suspect]
     Indication: METASTATIC RENAL CELL CARCINOMA
     Dosage: 10 mg, daily
     Route: 048
     Dates: start: 20120918, end: 20121030
  2. BLOPRESS [Concomitant]
     Dosage: 4 mg, QD
     Route: 048
     Dates: start: 20120921

REACTIONS (5)
  - Cardiomegaly [Unknown]
  - Stomatitis [Recovered/Resolved]
  - Rash [Recovering/Resolving]
  - Cellulitis [Recovering/Resolving]
  - Pyrexia [Unknown]
